FAERS Safety Report 25164941 (Version 1)
Quarter: 2025Q2

REPORT INFORMATION
  Report Type: Spontaneous
  Country: US (occurrence: US)
  Receive Date: 20250406
  Receipt Date: 20250406
  Transmission Date: 20250716
  Serious: Yes (Other)
  Sender: AMGEN
  Company Number: US-AMGEN-USASP2025061306

PATIENT
  Age: 48 Year
  Sex: Male

DRUGS (12)
  1. PREDNISONE [Suspect]
     Active Substance: PREDNISONE
     Indication: Burkitt^s lymphoma stage IV
     Route: 065
  2. RITUXIMAB [Suspect]
     Active Substance: RITUXIMAB
     Indication: Burkitt^s lymphoma stage IV
     Route: 065
  3. ETOPOSIDE [Concomitant]
     Active Substance: ETOPOSIDE
     Route: 040
  4. ETOPOSIDE [Concomitant]
     Active Substance: ETOPOSIDE
     Route: 029
  5. VINCRISTINE [Concomitant]
     Active Substance: VINCRISTINE
  6. CYCLOPHOSPHAMIDE [Concomitant]
     Active Substance: CYCLOPHOSPHAMIDE
  7. DOXORUBICIN [Concomitant]
     Active Substance: DOXORUBICIN
  8. DEXAMETHASONE [Concomitant]
     Active Substance: DEXAMETHASONE
     Route: 040
  9. IFOSFAMIDE [Concomitant]
     Active Substance: IFOSFAMIDE
     Route: 040
  10. IFOSFAMIDE [Concomitant]
     Active Substance: IFOSFAMIDE
     Route: 029
  11. CARBOPLATIN [Concomitant]
     Active Substance: CARBOPLATIN
     Route: 040
  12. CARBOPLATIN [Concomitant]
     Active Substance: CARBOPLATIN
     Route: 029

REACTIONS (3)
  - Burkitt^s lymphoma stage IV [Unknown]
  - Drug effective for unapproved indication [Unknown]
  - Off label use [Unknown]
